FAERS Safety Report 5957529-4 (Version None)
Quarter: 2008Q4

REPORT INFORMATION
  Report Type: 
  Country: None (occurrence: None)
  Receive Date: 20081112
  Receipt Date: 20081029
  Transmission Date: 20090506
  Serious: Yes (Death)
  Sender: FDA-Public Use
  Company Number: B0545201A

PATIENT
  Age: 58 Year
  Sex: Female

DRUGS (1)
  1. AUGMENTIN '125' [Suspect]
     Indication: PHARYNGITIS
     Dosage: ORAL
     Route: 048

REACTIONS (3)
  - ANAPHYLACTIC SHOCK [None]
  - CARDIOGENIC SHOCK [None]
  - CHEST PAIN [None]
